FAERS Safety Report 6328623-3 (Version None)
Quarter: 2009Q3

REPORT INFORMATION
  Report Type: 
  Country: None (occurrence: None)
  Receive Date: 20090824
  Receipt Date: 20090824
  Transmission Date: 20100115
  Serious: Yes (Hospitalization)
  Sender: FDA-Public Use
  Company Number: None

PATIENT
  Sex: Male
  Weight: 79.38 kg

DRUGS (3)
  1. MERCAPTOPURINE [Suspect]
     Dosage: 1000 MG
  2. METHOTREXATE [Suspect]
     Dosage: 15 MG
  3. DEXAMETHASONE [Suspect]
     Dosage: 60 MG

REACTIONS (13)
  - ABDOMINAL PAIN [None]
  - ALANINE AMINOTRANSFERASE INCREASED [None]
  - ASPARTATE AMINOTRANSFERASE INCREASED [None]
  - BLOOD BILIRUBIN INCREASED [None]
  - CHILLS [None]
  - DIARRHOEA [None]
  - HEADACHE [None]
  - LOBAR PNEUMONIA [None]
  - MUSCULOSKELETAL PAIN [None]
  - NAUSEA [None]
  - NECK PAIN [None]
  - SPLENIC INFARCTION [None]
  - VOMITING [None]
